FAERS Safety Report 4552719-X (Version None)
Quarter: 2005Q1

REPORT INFORMATION
  Report Type: 
  Country: None (occurrence: None)
  Receive Date: 20050114
  Receipt Date: 20041004
  Transmission Date: 20050727
  Serious: Yes (Life-Threatening)
  Sender: FDA-Public Use
  Company Number: FR-AMGEN-UK094088

PATIENT
  Age: 17 Year
  Sex: Male
  Weight: 67 kg

DRUGS (1)
  1. NEULASTA [Suspect]
     Indication: CHEMOTHERAPY
     Route: 058
     Dates: start: 20040626, end: 20040626

REACTIONS (3)
  - ASTHMA [None]
  - BRONCHOSPASM [None]
  - CYANOSIS [None]
